FAERS Safety Report 12076356 (Version 1)
Quarter: 2016Q1

REPORT INFORMATION
  Report Type: Spontaneous
  Country: US (occurrence: US)
  Receive Date: 20160215
  Receipt Date: 20160215
  Transmission Date: 20160526
  Serious: No
  Sender: FDA-Public Use
  Company Number: US-009507513-1602USA005811

PATIENT
  Age: 60 Year
  Sex: Female

DRUGS (1)
  1. ZETIA [Suspect]
     Active Substance: EZETIMIBE
     Indication: BLOOD CHOLESTEROL ABNORMAL
     Dosage: 10 MG, QD
     Route: 048

REACTIONS (4)
  - Bronchitis [Unknown]
  - Oropharyngeal pain [Unknown]
  - Sinusitis [Unknown]
  - Laryngitis [Unknown]

NARRATIVE: CASE EVENT DATE: 2016
